FAERS Safety Report 15401480 (Version 11)
Quarter: 2020Q2

REPORT INFORMATION
  Report Type: Report from Study
  Country: BR (occurrence: BR)
  Receive Date: 20180919
  Receipt Date: 20200615
  Transmission Date: 20200713
  Serious: Yes (Hospitalization, Other)
  Sender: FDA-Public Use
  Company Number: PHHY2018BR097401

PATIENT
  Age: 60 Year
  Sex: Female
  Weight: 69 kg

DRUGS (16)
  1. COSENTYX [Suspect]
     Active Substance: SECUKINUMAB
     Indication: PSORIATIC ARTHROPATHY
     Dosage: 300 MG, QW FOR 5 WEEKS
     Route: 058
     Dates: start: 20180706
  2. COSENTYX [Suspect]
     Active Substance: SECUKINUMAB
     Dosage: UNK
     Route: 058
     Dates: start: 20180828, end: 20190228
  3. METFORMIN [Concomitant]
     Active Substance: METFORMIN HYDROCHLORIDE
     Indication: DIABETES MELLITUS
     Dosage: 1 DF, BID
     Route: 048
  4. ENALAPRIL [Concomitant]
     Active Substance: ENALAPRIL
     Indication: HYPERTENSION
     Dosage: 1 DF, BID
     Route: 048
  5. COSENTYX [Suspect]
     Active Substance: SECUKINUMAB
     Dosage: (EVERY 20 DAYS)
     Route: 058
     Dates: end: 20190228
  6. CAPTOPRIL. [Concomitant]
     Active Substance: CAPTOPRIL
     Indication: HYPERTENSION
     Dosage: 2 DF, UNK
     Route: 048
  7. CARVEDILOL. [Concomitant]
     Active Substance: CARVEDILOL
     Indication: HYPERTENSION
     Dosage: 1 DF, BID
     Route: 048
  8. HYDROCHLOROTHIAZIDE. [Concomitant]
     Active Substance: HYDROCHLOROTHIAZIDE
     Indication: SWELLING
     Dosage: 1 DF, PRN
     Route: 048
  9. AMLODIPINE [Concomitant]
     Active Substance: AMLODIPINE BESYLATE
     Indication: HYPERTENSION
     Dosage: 1 DF, QD
     Route: 048
  10. COSENTYX [Suspect]
     Active Substance: SECUKINUMAB
     Indication: SPONDYLITIS
     Dosage: 300 MG, QW FOR 5 WEEKS
     Route: 058
     Dates: start: 20180706
  11. COSENTYX [Suspect]
     Active Substance: SECUKINUMAB
     Indication: HYPERSENSITIVITY
     Dosage: 300 MG, QMO (EVERY 28 DAYS)
     Route: 058
  12. COSENTYX [Suspect]
     Active Substance: SECUKINUMAB
     Dosage: UNK, Q2W
     Route: 058
  13. VITAFER [Concomitant]
     Indication: ANAEMIA
     Dosage: 1 DF, BID
     Route: 048
  14. COSENTYX [Suspect]
     Active Substance: SECUKINUMAB
     Dosage: UNK
     Route: 065
     Dates: end: 201911
  15. COSENTYX [Suspect]
     Active Substance: SECUKINUMAB
     Dosage: UNK, Q2W
     Route: 058
  16. ISORDIL [Concomitant]
     Active Substance: ISOSORBIDE DINITRATE
     Indication: DEPRESSION
     Dosage: 1 DF, BID
     Route: 048

REACTIONS (38)
  - Arthralgia [Recovering/Resolving]
  - Anaemia [Recovered/Resolved]
  - Hypokinesia [Not Recovered/Not Resolved]
  - Liver disorder [Not Recovered/Not Resolved]
  - Incorrect dose administered [Unknown]
  - Gait inability [Unknown]
  - Erythema [Recovering/Resolving]
  - Product dose omission [Unknown]
  - Pain in extremity [Not Recovered/Not Resolved]
  - Intestinal mass [Recovered/Resolved]
  - Pleural effusion [Recovered/Resolved]
  - Clavicle fracture [Recovering/Resolving]
  - Pain [Recovering/Resolving]
  - Pruritus [Recovering/Resolving]
  - Influenza [Unknown]
  - Product use in unapproved indication [Unknown]
  - Fall [Recovering/Resolving]
  - Angina pectoris [Recovering/Resolving]
  - Chest pain [Recovered/Resolved]
  - Breast cancer [Unknown]
  - Peripheral swelling [Recovering/Resolving]
  - Psoriasis [Recovered/Resolved with Sequelae]
  - Inappropriate schedule of product administration [Unknown]
  - General physical health deterioration [Unknown]
  - Depression [Recovering/Resolving]
  - Concomitant disease aggravated [Not Recovered/Not Resolved]
  - Dyspnoea [Recovered/Resolved]
  - Cardiac disorder [Recovered/Resolved]
  - Upper limb fracture [Not Recovered/Not Resolved]
  - Joint dislocation [Unknown]
  - Speech disorder [Recovered/Resolved]
  - Memory impairment [Recovered/Resolved]
  - Swelling [Unknown]
  - Feeling abnormal [Recovering/Resolving]
  - Abdominal pain upper [Recovered/Resolved]
  - Hepatic steatosis [Recovered/Resolved]
  - Asthenia [Recovering/Resolving]
  - Somnolence [Not Recovered/Not Resolved]

NARRATIVE: CASE EVENT DATE: 201808
